FAERS Safety Report 4979523-2 (Version None)
Quarter: 2006Q1

REPORT INFORMATION
  Report Type: 
  Country: None (occurrence: None)
  Receive Date: 20060223
  Receipt Date: 20050707
  Transmission Date: 20060701
  Serious: Yes (Other)
  Sender: FDA-Public Use
  Company Number: HQWYE167112JUL05

PATIENT
  Age: 52 Year
  Sex: Female
  Weight: 40.86 kg

DRUGS (2)
  1. EFFEXOR [Suspect]
     Indication: HOT FLUSH
     Dosage: 75 MG 1X PER 1 DAY, ORAL
     Route: 048
     Dates: start: 20050702, end: 20050702
  2. ELAVIL [Concomitant]

REACTIONS (5)
  - DIARRHOEA [None]
  - DYSPHAGIA [None]
  - MEDICATION ERROR [None]
  - NERVOUSNESS [None]
  - VISION BLURRED [None]
